FAERS Safety Report 11145944 (Version 1)
Quarter: 2015Q2

REPORT INFORMATION
  Report Type: Report from Study
  Country: JP (occurrence: JP)
  Receive Date: 20150528
  Receipt Date: 20150528
  Transmission Date: 20150821
  Serious: Yes (Hospitalization)
  Sender: FDA-Public Use
  Company Number: JP-GLAXOSMITHKLINE-JP2015JPN016354

PATIENT
  Age: 72 Year
  Sex: Male

DRUGS (3)
  1. LOXOPROFEN [Concomitant]
     Active Substance: LOXOPROFEN
     Indication: PREMEDICATION
     Dosage: UNK MG, UNK
     Dates: start: 20140522, end: 20140522
  2. OFATUMUMAB [Suspect]
     Active Substance: OFATUMUMAB
     Indication: CHRONIC LYMPHOCYTIC LEUKAEMIA
     Dosage: 100 MG, QD
     Route: 041
     Dates: start: 20140522, end: 20140522
  3. RESTAMIN [Concomitant]
     Active Substance: DIPHENHYDRAMINE
     Indication: PREMEDICATION
     Dosage: UNK MG, UNK
     Dates: start: 20140522, end: 20140522

REACTIONS (1)
  - Rash [Recovered/Resolved]

NARRATIVE: CASE EVENT DATE: 20140522
